FAERS Safety Report 18624986 (Version 1)
Quarter: 2020Q4

REPORT INFORMATION
  Report Type: Spontaneous
  Country: US (occurrence: US)
  Receive Date: 20201216
  Receipt Date: 20201216
  Transmission Date: 20210114
  Serious: Yes (Other)
  Sender: FDA-Public Use
  Company Number: US-PFIZER INC-2020493122

PATIENT
  Age: 26 Year
  Sex: Male
  Weight: 104.33 kg

DRUGS (3)
  1. GEODON [Suspect]
     Active Substance: ZIPRASIDONE HYDROCHLORIDE\ZIPRASIDONE MESYLATE
     Indication: BIPOLAR I DISORDER
     Dosage: 280 MG, DAILY
     Route: 048
     Dates: start: 200807, end: 2010
  2. DEPAKOTE [Concomitant]
     Active Substance: DIVALPROEX SODIUM
     Indication: BIPOLAR DISORDER
     Dosage: 100 MG, DAILY
  3. GEODON [Suspect]
     Active Substance: ZIPRASIDONE HYDROCHLORIDE\ZIPRASIDONE MESYLATE
     Dosage: 80 MG
     Dates: start: 2009

REACTIONS (10)
  - Enuresis [Unknown]
  - Dyspnoea [Unknown]
  - Urinary incontinence [Not Recovered/Not Resolved]
  - Prescribed overdose [Unknown]
  - Loss of personal independence in daily activities [Unknown]
  - Small fibre neuropathy [Unknown]
  - Neuropathy peripheral [Not Recovered/Not Resolved]
  - Autonomic neuropathy [Unknown]
  - Nerve injury [Unknown]
  - Cardiac disorder [Unknown]

NARRATIVE: CASE EVENT DATE: 200807
